FAERS Safety Report 5643303-5 (Version None)
Quarter: 2008Q1

REPORT INFORMATION
  Report Type: 
  Country: None (occurrence: None)
  Receive Date: 20080228
  Receipt Date: 20080212
  Transmission Date: 20080703
  Serious: Yes (Other)
  Sender: FDA-Public Use
  Company Number: IT-BAYER-200813757GPV

PATIENT
  Age: 24 Year
  Sex: Male

DRUGS (5)
  1. FLUDARABINE [Suspect]
     Indication: T-CELL TYPE ACUTE LEUKAEMIA
     Route: 065
     Dates: start: 20060301
  2. CYTARABINE [Suspect]
     Indication: T-CELL TYPE ACUTE LEUKAEMIA
     Route: 065
     Dates: start: 20060301
  3. IDARUBICIN HCL [Suspect]
     Indication: T-CELL TYPE ACUTE LEUKAEMIA
     Route: 065
     Dates: start: 20060301
  4. NEUPOGEN [Suspect]
     Indication: T-CELL TYPE ACUTE LEUKAEMIA
     Dates: start: 20060301
  5. ITRACONAZOLE [Concomitant]
     Indication: ANTIFUNGAL PROPHYLAXIS
     Route: 065

REACTIONS (2)
  - ALTERNARIA INFECTION [None]
  - PANCYTOPENIA [None]
